FAERS Safety Report 15277409 (Version 1)
Quarter: 2018Q3

REPORT INFORMATION
  Report Type: Spontaneous
  Country: US (occurrence: US)
  Receive Date: 20180814
  Receipt Date: 20180814
  Transmission Date: 20181010
  Serious: Yes (Hospitalization)
  Sender: FDA-Public Use
  Company Number: US-ASTRAZENECA-2018SF01185

PATIENT
  Sex: Female
  Weight: 64.9 kg

DRUGS (1)
  1. FASENRA [Suspect]
     Active Substance: BENRALIZUMAB
     Indication: ASTHMA
     Dosage: 30USP UNITS MONTHLY
     Route: 058
     Dates: start: 20180731

REACTIONS (7)
  - C-reactive protein increased [Unknown]
  - Pyrexia [Unknown]
  - Pulmonary function test decreased [Unknown]
  - Asthenia [Unknown]
  - Cough [Unknown]
  - Headache [Unknown]
  - Dyspnoea [Unknown]

NARRATIVE: CASE EVENT DATE: 20180801
